FAERS Safety Report 9477523 (Version 1)
Quarter: 2013Q3

REPORT INFORMATION
  Report Type: Spontaneous
  Country: US (occurrence: US)
  Receive Date: 20130827
  Receipt Date: 20130827
  Transmission Date: 20140515
  Serious: Yes (Other)
  Sender: FDA-Public Use
  Company Number: US-AMGEN-USASP2013059700

PATIENT
  Age: 72 Year
  Sex: Female
  Weight: 46.26 kg

DRUGS (5)
  1. ENBREL [Suspect]
     Indication: PRODUCT USED FOR UNKNOWN INDICATION
     Dosage: 50 MG, QWK
     Route: 058
  2. RELAFEN [Concomitant]
     Dosage: 750 MG, UNK
  3. METHOTREXATE [Concomitant]
     Dosage: 25 MG/ML, UNK
  4. METOPROLOL [Concomitant]
     Dosage: 100 MG, ER
  5. METANX [Concomitant]
     Dosage: UNK

REACTIONS (2)
  - Injection site cellulitis [Not Recovered/Not Resolved]
  - Spinal column stenosis [Not Recovered/Not Resolved]
